FAERS Safety Report 18236785 (Version 9)
Quarter: 2020Q4

REPORT INFORMATION
  Report Type: Report from Study
  Country: CN (occurrence: CN)
  Receive Date: 20200907
  Receipt Date: 20201206
  Transmission Date: 20210113
  Serious: Yes (Death, Life-Threatening)
  Sender: FDA-Public Use
  Company Number: CN-ASTRAZENECA-2020SF05271

PATIENT
  Age: 24729 Day
  Sex: Female

DRUGS (9)
  1. OLAPARIB. [Suspect]
     Active Substance: OLAPARIB
     Indication: OVARIAN CANCER
     Dosage: 300.0MG ONCE/SINGLE ADMINISTRATION
     Route: 048
     Dates: start: 20181229, end: 20181229
  2. OLAPARIB. [Suspect]
     Active Substance: OLAPARIB
     Indication: OVARIAN CANCER
     Dosage: 300.0MG ONCE/SINGLE ADMINISTRATION
     Route: 048
     Dates: start: 20200223, end: 20200224
  3. OLAPARIB. [Suspect]
     Active Substance: OLAPARIB
     Indication: OVARIAN CANCER
     Dosage: 300.0MG ONCE/SINGLE ADMINISTRATION
     Route: 048
     Dates: start: 20200612, end: 20200612
  4. OLAPARIB. [Suspect]
     Active Substance: OLAPARIB
     Indication: OVARIAN CANCER
     Dosage: 300.0MG ONCE/SINGLE ADMINISTRATION
     Route: 048
     Dates: start: 20181230, end: 20200222
  5. OLAPARIB. [Suspect]
     Active Substance: OLAPARIB
     Indication: OVARIAN CANCER
     Dosage: 250.0MG ONCE/SINGLE ADMINISTRATION
     Route: 048
     Dates: start: 20200712, end: 20200721
  6. OLAPARIB. [Suspect]
     Active Substance: OLAPARIB
     Indication: OVARIAN CANCER
     Dosage: 250.0MG ONCE/SINGLE ADMINISTRATION
     Route: 048
     Dates: end: 20200722
  7. FOLIC ACID. [Concomitant]
     Active Substance: FOLIC ACID
     Route: 048
     Dates: start: 20200731
  8. OLAPARIB. [Suspect]
     Active Substance: OLAPARIB
     Indication: OVARIAN CANCER
     Dosage: 250.0MG ONCE/SINGLE ADMINISTRATION
     Route: 048
     Dates: start: 20200711, end: 20200711
  9. OLAPARIB. [Suspect]
     Active Substance: OLAPARIB
     Indication: OVARIAN CANCER
     Dosage: 300.0MG ONCE/SINGLE ADMINISTRATION
     Route: 048
     Dates: start: 20200225, end: 20200611

REACTIONS (1)
  - Acute myeloid leukaemia [Fatal]

NARRATIVE: CASE EVENT DATE: 20200828
